FAERS Safety Report 19811414 (Version 1)
Quarter: 2021Q3

REPORT INFORMATION
  Report Type: Spontaneous
  Country: CN (occurrence: CN)
  Receive Date: 20210909
  Receipt Date: 20210909
  Transmission Date: 20211014
  Serious: Yes (Other)
  Sender: FDA-Public Use
  Company Number: CN-PFIZER INC-202101119705

PATIENT
  Age: 57 Year
  Sex: Female

DRUGS (2)
  1. SODIUM CHLORIDE. [Concomitant]
     Active Substance: SODIUM CHLORIDE
     Indication: VEHICLE SOLUTION USE
     Dosage: 100 ML, TWICE DAILY
     Route: 041
     Dates: start: 20210821, end: 20210822
  2. PIPERACILLIN/TAZOBACTAM [Suspect]
     Active Substance: PIPERACILLIN SODIUM\TAZOBACTAM SODIUM
     Indication: INFECTION
     Dosage: 4.5 G, TWICE DAILY [EVERY 12 HOURS (Q12H)]
     Route: 041
     Dates: start: 20210821, end: 20210822

REACTIONS (3)
  - Pruritus [Recovered/Resolved]
  - Tongue pruritus [Recovered/Resolved]
  - Rash [Recovered/Resolved]

NARRATIVE: CASE EVENT DATE: 20210822
